APPROVED DRUG PRODUCT: DEXAMETHASONE SODIUM PHOSPHATE
Active Ingredient: DEXAMETHASONE SODIUM PHOSPHATE
Strength: EQ 4MG PHOSPHATE/ML
Dosage Form/Route: INJECTABLE;INJECTION
Application: A214890 | Product #002
Applicant: GENEYORK PHARMACEUTICALS GROUP LLC
Approved: Jul 28, 2023 | RLD: No | RS: No | Type: DISCN